FAERS Safety Report 8603278-3 (Version None)
Quarter: 2012Q3

REPORT INFORMATION
  Report Type: 
  Country: None (occurrence: None)
  Receive Date: 20120817
  Receipt Date: 20120806
  Transmission Date: 20120928
  Serious: No
  Sender: FDA-Public Use
  Company Number: JP-UCBSA-063702

PATIENT

DRUGS (2)
  1. VALPROATE SODIUM [Suspect]
     Route: 048
  2. KEPPRA [Suspect]
     Route: 048

REACTIONS (1)
  - WHITE BLOOD CELL COUNT DECREASED [None]
